FAERS Safety Report 8350065 (Version 2)
Quarter: 2013Q2

REPORT INFORMATION
  Report Type: Spontaneous
  Country: FR (occurrence: FR)
  Receive Date: 20120124
  Receipt Date: 20130621
  Transmission Date: 20140414
  Serious: Yes (Other)
  Sender: FDA-Public Use
  Company Number: FR-BRISTOL-MYERS SQUIBB COMPANY-16354276

PATIENT
  Age: 72 Year
  Sex: Female

DRUGS (9)
  1. REYATAZ CAPS 300 MG [Suspect]
     Indication: HIV INFECTION
     Dates: start: 20080327, end: 20110707
  2. NORVIR [Concomitant]
     Route: 048
     Dates: start: 20051115, end: 20110707
  3. KIVEXA [Concomitant]
     Dosage: 1DF: 600MG/300MG
     Dates: start: 20080327
  4. TRANSIPEG [Concomitant]
     Indication: CONSTIPATION
     Dosage: 1 DF : 2.95 UNITS NOS,TRANSIPEG 2.95 (MACROGOL 3350)
     Route: 048
  5. NEURONTIN [Concomitant]
     Indication: NEUROPATHY PERIPHERAL
     Route: 048
  6. IXPRIM [Concomitant]
     Indication: ANALGESIC THERAPY
     Dosage: 1DF: 37.5MG/325MG
     Route: 048
  7. TENORMINE [Concomitant]
     Indication: ARRHYTHMIA
     Dosage: 1DF: 0.5/D?TENORMINE 50 MG
     Route: 048
  8. CRESTOR [Concomitant]
     Indication: HYPERCHOLESTEROLAEMIA
     Route: 048
  9. LEVOCARNIL [Concomitant]
     Dosage: 100 MG/ML
     Route: 048

REACTIONS (2)
  - Renal failure [Recovered/Resolved]
  - Nephrolithiasis [Recovered/Resolved]
